FAERS Safety Report 21407353 (Version 2)
Quarter: 2022Q4

REPORT INFORMATION
  Report Type: Spontaneous
  Country: IN (occurrence: IN)
  Receive Date: 20221004
  Receipt Date: 20221004
  Transmission Date: 20230112
  Serious: Yes (Life-Threatening, Hospitalization, Other)
  Sender: FDA-Public Use
  Company Number: IN-PFIZER INC-PV202200069703

PATIENT
  Age: 31 Year
  Sex: Male

DRUGS (7)
  1. DOXORUBICIN HYDROCHLORIDE [Suspect]
     Active Substance: DOXORUBICIN HYDROCHLORIDE
     Indication: Acute lymphocytic leukaemia
     Dosage: UNK
  2. MEROPENEM [Suspect]
     Active Substance: MEROPENEM
     Indication: Antibiotic therapy
     Dosage: UNK
  3. CYCLOPHOSPHAMIDE [Suspect]
     Active Substance: CYCLOPHOSPHAMIDE
     Indication: Acute lymphocytic leukaemia
     Dosage: UNK
  4. VINCRISTINE [Suspect]
     Active Substance: VINCRISTINE
     Indication: Acute lymphocytic leukaemia
     Dosage: UNK
  5. DEXAMETHASONE [Suspect]
     Active Substance: DEXAMETHASONE
     Indication: Acute lymphocytic leukaemia
     Dosage: UNK
  6. CASPOFUNGIN [Suspect]
     Active Substance: CASPOFUNGIN
     Indication: Antifungal prophylaxis
     Dosage: UNK
  7. AMIKACIN [Suspect]
     Active Substance: AMIKACIN
     Indication: Antibiotic therapy
     Dosage: UNK

REACTIONS (3)
  - Febrile neutropenia [Recovered/Resolved]
  - Systemic candida [Recovered/Resolved]
  - Infectious pleural effusion [Recovered/Resolved]
